FAERS Safety Report 4694144-7 (Version None)
Quarter: 2005Q2

REPORT INFORMATION
  Report Type: 
  Country: None (occurrence: None)
  Receive Date: 20050616
  Receipt Date: 20050128
  Transmission Date: 20051028
  Serious: Yes (Other)
  Sender: FDA-Public Use
  Company Number: 800267

PATIENT
  Age: 45 Year
  Sex: Female
  Weight: 65.318 kg

DRUGS (11)
  1. EXTRANEAL [Suspect]
     Indication: PERITONEAL DIALYSIS
     Dosage: 2 L; QD; INTRAPERITONEAL
     Route: 033
     Dates: start: 20041218, end: 20050125
  2. PREVACID [Concomitant]
  3. FOLIC ACID [Concomitant]
  4. NEPHROCAPS [Concomitant]
  5. TUMS [Concomitant]
  6. ASPIRIN [Concomitant]
  7. MS CONTIN [Concomitant]
  8. ZOCOR [Concomitant]
  9. EPOGEN [Concomitant]
  10. HECTOROL [Concomitant]
  11. LANTUS [Concomitant]

REACTIONS (3)
  - ERYTHEMA [None]
  - PRURITUS [None]
  - RASH PAPULAR [None]
